FAERS Safety Report 13156218 (Version 1)
Quarter: 2017Q1

REPORT INFORMATION
  Report Type: Spontaneous
  Country: US (occurrence: US)
  Receive Date: 20170126
  Receipt Date: 20170126
  Transmission Date: 20170428
  Serious: Yes (Life-Threatening, Hospitalization)
  Sender: FDA-Public Use
  Company Number: US-PURDUE-GBR-2017-0043079

PATIENT
  Age: 6 Day
  Sex: Male

DRUGS (1)
  1. HYDROMORPHONE HYDROCHLORIDE. [Suspect]
     Active Substance: HYDROMORPHONE HYDROCHLORIDE
     Indication: EXPOSURE DURING BREAST FEEDING
     Route: 063

REACTIONS (5)
  - Exposure during breast feeding [Recovered/Resolved]
  - Urine output decreased [Recovered/Resolved]
  - Toxicity to various agents [Recovered/Resolved]
  - Apnoeic attack [Recovered/Resolved]
  - Lethargy [Recovered/Resolved]
